FAERS Safety Report 18573461 (Version 1)
Quarter: 2020Q4

REPORT INFORMATION
  Report Type: Spontaneous
  Country: GB (occurrence: GB)
  Receive Date: 20201203
  Receipt Date: 20201203
  Transmission Date: 20210114
  Serious: Yes (Hospitalization)
  Sender: FDA-Public Use
  Company Number: GB-009507513-2012GBR000498

PATIENT
  Age: 65 Year
  Sex: Female
  Weight: 86 kg

DRUGS (12)
  1. THEOPHYLLINE [Suspect]
     Active Substance: THEOPHYLLINE ANHYDROUS
     Dosage: 1200 MILLIGRAM, QD,WITHDRAWN FOR 48 HOURS, RESTARTED AT 200MG TWICE DAILY.
     Route: 048
     Dates: end: 20201106
  2. THEOPHYLLINE [Suspect]
     Active Substance: THEOPHYLLINE ANHYDROUS
     Indication: CHRONIC OBSTRUCTIVE PULMONARY DISEASE
     Dosage: 400 MILLIGRAM, QD,TO BE CONTINUED FOR 4 DAYS BEFORE THEOPHYLLINE LEVELS ARE TAKEN AGAIN.
     Route: 048
     Dates: start: 20201108
  3. TIOTROPIUM BROMIDE [Suspect]
     Active Substance: TIOTROPIUM BROMIDE
     Indication: CHRONIC OBSTRUCTIVE PULMONARY DISEASE
     Dosage: 5 MICROGRAM, QD,EVERY MORNING
     Route: 055
  4. FOSTAIR [Suspect]
     Active Substance: BECLOMETHASONE\FORMOTEROL
     Indication: ASTHMA
     Dosage: 4 DOSAGE FORM, QD,PUFFS
     Route: 055
  5. ALBUTEROL. [Suspect]
     Active Substance: ALBUTEROL
     Dosage: 800 MICROGRAM, QD
     Route: 055
  6. MONTELUKAST SODIUM. [Suspect]
     Active Substance: MONTELUKAST SODIUM
     Indication: ASTHMA
     Dosage: 10 MILLIGRAM, QD,AT NIGHT
     Route: 048
  7. FOLIC ACID. [Suspect]
     Active Substance: FOLIC ACID
     Dosage: 5 MILLIGRAM, QD
     Route: 048
  8. ALBUTEROL. [Suspect]
     Active Substance: ALBUTEROL
     Indication: ASTHMA
     Dosage: 10 MILLIGRAM, QD,NEBULISED, AND AS REQUIRED.
     Route: 055
  9. VANCOMYCIN [Suspect]
     Active Substance: VANCOMYCIN
     Indication: CLOSTRIDIUM DIFFICILE INFECTION
     Dosage: 2000 MILLIGRAM, QD
     Route: 048
     Dates: start: 20200929, end: 20201013
  10. CYCLIZINE [Suspect]
     Active Substance: CYCLIZINE
     Indication: NAUSEA
     Dosage: 50 MILLIGRAM, PRN (AS NECESSARY) ,THREE TIMES A DAY.
     Route: 048
  11. TOLTERODINE [Suspect]
     Active Substance: TOLTERODINE
     Indication: MICTURITION URGENCY
     Dosage: 4 MILLIGRAM, QD,EVERY MORNING
     Route: 048
  12. CARBOCYSTEINE [Suspect]
     Active Substance: CARBOCYSTEINE
     Indication: CHRONIC OBSTRUCTIVE PULMONARY DISEASE
     Dosage: 1500 MILLIGRAM, QD
     Route: 048

REACTIONS (5)
  - Diarrhoea [Recovering/Resolving]
  - Palpitations [Unknown]
  - Sinus tachycardia [Recovered/Resolved]
  - Vomiting [Recovering/Resolving]
  - Dehydration [Unknown]

NARRATIVE: CASE EVENT DATE: 20200929
